FAERS Safety Report 14141334 (Version 3)
Quarter: 2022Q3

REPORT INFORMATION
  Report Type: Spontaneous
  Country: BR (occurrence: BR)
  Receive Date: 20171030
  Receipt Date: 20220908
  Transmission Date: 20221026
  Serious: Yes (Death, Hospitalization, Other)
  Sender: FDA-Public Use
  Company Number: BR-PFIZER INC-2017462240

PATIENT
  Age: 63 Year
  Sex: Female

DRUGS (1)
  1. SUTENT [Suspect]
     Active Substance: SUNITINIB MALATE
     Dosage: UNK
     Dates: start: 201708, end: 201801

REACTIONS (9)
  - Neoplasm progression [Fatal]
  - Feeling abnormal [Unknown]
  - Anaemia [Unknown]
  - Asthenia [Unknown]
  - Malaise [Unknown]
  - Vomiting [Unknown]
  - Blood potassium abnormal [Unknown]
  - Daydreaming [Unknown]
  - Dry skin [Unknown]

NARRATIVE: CASE EVENT DATE: 20170101
